FAERS Safety Report 5073264-1 (Version None)
Quarter: 2006Q3

REPORT INFORMATION
  Report Type: 
  Country: None (occurrence: None)
  Receive Date: 20060802
  Receipt Date: 20060712
  Transmission Date: 20061208
  Serious: Yes (Life-Threatening, Hospitalization, Other)
  Sender: FDA-Public Use
  Company Number: 2006062396

PATIENT
  Age: 44 Year
  Sex: Male
  Weight: 99.7913 kg

DRUGS (1)
  1. CELEBREX [Suspect]
     Indication: OSTEOARTHRITIS
     Dosage: 400 MG (200 MG 2 IN 1 D) ORAL
     Route: 048
     Dates: start: 20020806, end: 20040930

REACTIONS (15)
  - ACUTE MYOCARDIAL INFARCTION [None]
  - AMNESIA [None]
  - ARRHYTHMIA [None]
  - ATRIOVENTRICULAR BLOCK [None]
  - CARDIAC FAILURE [None]
  - CARDIO-RESPIRATORY ARREST [None]
  - CORONARY ARTERY OCCLUSION [None]
  - DISCOMFORT [None]
  - FEAR [None]
  - INSOMNIA [None]
  - MEDICAL DEVICE COMPLICATION [None]
  - NIGHTMARE [None]
  - PANIC ATTACK [None]
  - SEXUAL DYSFUNCTION [None]
  - STRESS [None]
